FAERS Safety Report 5228993-3 (Version None)
Quarter: 2007Q1

REPORT INFORMATION
  Report Type: 
  Country: None (occurrence: None)
  Receive Date: 20070205
  Receipt Date: 20070122
  Transmission Date: 20070707
  Serious: Yes (Other)
  Sender: FDA-Public Use
  Company Number: US-ELI_LILLY_AND_COMPANY-US200701005363

PATIENT
  Sex: Female

DRUGS (2)
  1. CYMBALTA [Suspect]
     Indication: MAJOR DEPRESSION
     Dosage: 60 MG, DAILY (1/D)
     Dates: start: 20061208, end: 20070105
  2. CYMBALTA [Suspect]
     Dosage: 30 MG, UNK
     Dates: start: 20061201, end: 20061207

REACTIONS (3)
  - DIARRHOEA [None]
  - HEPATITIS [None]
  - NAUSEA [None]
